FAERS Safety Report 6718743-3 (Version None)
Quarter: 2010Q2

REPORT INFORMATION
  Report Type: 
  Country: None (occurrence: None)
  Receive Date: 20100511
  Receipt Date: 20100503
  Transmission Date: 20101027
  Serious: Yes (Other)
  Sender: FDA-Public Use
  Company Number: US-TEVA-233090USA

PATIENT

DRUGS (1)
  1. PROGLYCEM SUSPENSION [Suspect]

REACTIONS (1)
  - PULMONARY HYPERTENSION [None]
